FAERS Safety Report 5059530-4 (Version None)
Quarter: 2006Q3

REPORT INFORMATION
  Report Type: 
  Country: None (occurrence: None)
  Receive Date: 20060724
  Receipt Date: 20060420
  Transmission Date: 20061208
  Serious: Yes (Death)
  Sender: FDA-Public Use
  Company Number: PHBS2006JP05781

PATIENT
  Age: 75 Year

DRUGS (6)
  1. LIMAS [Suspect]
     Indication: PARKINSON'S DISEASE
     Route: 048
  2. TRYPTANOL [Suspect]
     Indication: PARKINSON'S DISEASE
     Route: 048
  3. PARLODEL [Suspect]
     Indication: PARKINSON'S DISEASE
     Route: 048
  4. SYMMETREL [Suspect]
     Indication: PARKINSON'S DISEASE
     Route: 048
  5. CONTOMIN [Suspect]
     Route: 048
  6. SERENACE [Suspect]
     Route: 048

REACTIONS (4)
  - BLOOD CREATINE PHOSPHOKINASE INCREASED [None]
  - NEUROLEPTIC MALIGNANT SYNDROME [None]
  - PYREXIA [None]
  - RENAL IMPAIRMENT [None]
